FAERS Safety Report 18507333 (Version 1)
Quarter: 2020Q4

REPORT INFORMATION
  Report Type: Spontaneous
  Country: US (occurrence: US)
  Receive Date: 20201116
  Receipt Date: 20201116
  Transmission Date: 20210114
  Serious: Yes (Hospitalization)
  Sender: FDA-Public Use
  Company Number: None

PATIENT
  Age: 79 Year
  Sex: Male

DRUGS (4)
  1. ABIRATERONE ACETATE. [Suspect]
     Active Substance: ABIRATERONE ACETATE
     Indication: PROSTATE CANCER
     Route: 048
     Dates: start: 20200327
  2. NORVASC [Concomitant]
     Active Substance: AMLODIPINE BESYLATE
     Dates: start: 20201113
  3. ASPIRIN. [Concomitant]
     Active Substance: ASPIRIN
     Dates: start: 20201113
  4. PREDNISONE. [Suspect]
     Active Substance: PREDNISONE

REACTIONS (1)
  - Hypertension [None]

NARRATIVE: CASE EVENT DATE: 20201018
